FAERS Safety Report 23720727 (Version 1)
Quarter: 2024Q2

REPORT INFORMATION
  Report Type: Spontaneous
  Country: JP (occurrence: JP)
  Receive Date: 20240409
  Receipt Date: 20240409
  Transmission Date: 20240715
  Serious: Yes (Other)
  Sender: FDA-Public Use
  Company Number: JP-ORGANON-O2404JPN000729

PATIENT
  Age: 88 Year
  Sex: Female

DRUGS (7)
  1. CARBIDOPA\LEVODOPA [Suspect]
     Active Substance: CARBIDOPA\LEVODOPA
     Indication: Parkinson^s disease
     Dosage: 1000 MILLIGRAM
     Route: 048
  2. CARBIDOPA\LEVODOPA [Suspect]
     Active Substance: CARBIDOPA\LEVODOPA
     Dosage: UNK
     Route: 048
  3. CARBIDOPA\LEVODOPA [Suspect]
     Active Substance: CARBIDOPA\LEVODOPA
     Dosage: 1-1.5 TABLETS
     Route: 048
  4. QUETIAPINE FUMARATE [Suspect]
     Active Substance: QUETIAPINE FUMARATE
     Indication: Chest discomfort
     Dosage: UNK
     Route: 048
  5. NEUPRO [Concomitant]
     Active Substance: ROTIGOTINE
     Dosage: UNK
     Route: 065
  6. LEVODOPA [Concomitant]
     Active Substance: LEVODOPA
     Dosage: THE DOSE WAS INCREASED BY 0.05 MG EVERY 3 MONTHS
     Route: 065
  7. LEVODOPA [Concomitant]
     Active Substance: LEVODOPA
     Dosage: 95 MILLIGRAM(1/5)
     Route: 065

REACTIONS (9)
  - Panic reaction [Unknown]
  - Chest discomfort [Unknown]
  - Blood pressure fluctuation [Unknown]
  - Bedridden [Unknown]
  - Abnormal behaviour [Unknown]
  - Physical deconditioning [Unknown]
  - Blood pressure increased [Unknown]
  - Dysphagia [Unknown]
  - Somnolence [Unknown]
